FAERS Safety Report 7975659-2 (Version None)
Quarter: 2011Q4

REPORT INFORMATION
  Report Type: 
  Country: None (occurrence: None)
  Receive Date: 20111213
  Receipt Date: 20111006
  Transmission Date: 20120403
  Serious: No
  Sender: FDA-Public Use
  Company Number: US-AMGEN-USASP2011049513

PATIENT
  Age: 74 Year
  Sex: Female

DRUGS (11)
  1. ZANTAC [Concomitant]
  2. EFFEXOR [Concomitant]
  3. OMEPRAZOLE [Concomitant]
  4. LORAZEPAM [Concomitant]
  5. PERCOCET [Concomitant]
  6. MIRTAZEPINE TEVA [Concomitant]
  7. CELEBREX [Concomitant]
  8. ASPIRIN [Concomitant]
  9. ENBREL [Suspect]
     Indication: ANKYLOSING SPONDYLITIS
     Dosage: 50 MG, QWK
     Dates: start: 20100601
  10. DESYREL [Concomitant]
  11. FLEXERIL [Concomitant]

REACTIONS (3)
  - COUGH [None]
  - OROPHARYNGEAL PAIN [None]
  - CYSTITIS [None]
